FAERS Safety Report 21640266 (Version 2)
Quarter: 2022Q4

REPORT INFORMATION
  Report Type: Spontaneous
  Country: US (occurrence: US)
  Receive Date: 20221124
  Receipt Date: 20221214
  Transmission Date: 20230113
  Serious: No
  Sender: FDA-Public Use
  Company Number: US-009507513-2211USA007925

PATIENT
  Sex: Female

DRUGS (2)
  1. JANUVIA [Suspect]
     Active Substance: SITAGLIPTIN PHOSPHATE
     Dosage: 100 MILLIGRAM
     Route: 048
  2. ALOGLIPTIN [Suspect]
     Active Substance: ALOGLIPTIN
     Dosage: 12.5 MILLIGRAM
     Route: 048

REACTIONS (5)
  - Poor quality product administered [Unknown]
  - Product shape issue [Unknown]
  - Product colour issue [Unknown]
  - Product contamination [Unknown]
  - No adverse event [Unknown]
